FAERS Safety Report 15942945 (Version 2)
Quarter: 2019Q2

REPORT INFORMATION
  Report Type: Spontaneous
  Country: US (occurrence: US)
  Receive Date: 20190210
  Receipt Date: 20190424
  Transmission Date: 20190711
  Serious: No
  Sender: FDA-Public Use
  Company Number: US-JNJFOC-20190114734

PATIENT
  Age: 87 Year
  Sex: Female
  Weight: 63.5 kg

DRUGS (4)
  1. TYLENOL 8 HR ARTHRITIS PAIN [Suspect]
     Active Substance: ACETAMINOPHEN
     Indication: POLYARTHRITIS
     Dosage: 7 AM IN THE MORNING AND 7 PM AT NIGHT WITH FOOD
     Route: 048
     Dates: start: 20190102
  2. ADVIL [Concomitant]
     Active Substance: IBUPROFEN
     Indication: ARTHRITIS
     Route: 065
     Dates: start: 20190221
  3. CALCIUM 600+D3 [Concomitant]
     Active Substance: CALCIUM CARBONATE\VITAMIN D
     Indication: BONE DISORDER
     Route: 065
     Dates: start: 1990
  4. TYLENOL 8 HR ARTHRITIS PAIN [Suspect]
     Active Substance: ACETAMINOPHEN
     Indication: ARTHRALGIA
     Dosage: 7 AM IN THE MORNING AND 7 PM AT NIGHT WITH FOOD
     Route: 048
     Dates: start: 20190102

REACTIONS (7)
  - Sensory disturbance [Recovered/Resolved]
  - Hypoaesthesia oral [Recovered/Resolved]
  - Wrong technique in product usage process [Unknown]
  - Dry mouth [Not Recovered/Not Resolved]
  - Off label use [Unknown]
  - Incorrect dose administered [Unknown]
  - Inappropriate schedule of product administration [Unknown]

NARRATIVE: CASE EVENT DATE: 20190102
